FAERS Safety Report 6142778-5 (Version None)
Quarter: 2009Q1

REPORT INFORMATION
  Report Type: 
  Country: None (occurrence: None)
  Receive Date: 20090331
  Receipt Date: 20080131
  Transmission Date: 20090719
  Serious: Yes (Other)
  Sender: FDA-Public Use
  Company Number: WAES 0802USA00035

PATIENT
  Sex: Male

DRUGS (3)
  1. CANCIDAS [Suspect]
     Indication: CANDIDIASIS
     Dosage: IV
     Route: 042
  2. CORTICOSTEROIDS [Concomitant]
  3. GANCICLOVIR [Concomitant]

REACTIONS (1)
  - HEPATIC ENZYME INCREASED [None]
